FAERS Safety Report 4910698-7 (Version None)
Quarter: 2006Q1

REPORT INFORMATION
  Report Type: 
  Country: None (occurrence: None)
  Receive Date: 20060208
  Receipt Date: 20060208
  Transmission Date: 20060701
  Serious: Yes (Hospitalization, Disabling)
  Sender: FDA-Public Use
  Company Number: None

PATIENT
  Age: 56 Year
  Sex: Male
  Weight: 95.2554 kg

DRUGS (1)
  1. COUMADIN [Suspect]
     Dosage: COUMADIN 10MG QPM
     Dates: start: 20041013, end: 20041027

REACTIONS (1)
  - CEREBRAL HAEMORRHAGE [None]
